FAERS Safety Report 24128644 (Version 1)
Quarter: 2024Q3

REPORT INFORMATION
  Report Type: Spontaneous
  Country: US (occurrence: US)
  Receive Date: 20240723
  Receipt Date: 20240723
  Transmission Date: 20241016
  Serious: No
  Sender: NOVO NORDISK
  Company Number: US-NOVOPROD-1172012

PATIENT
  Age: 75 Year
  Sex: Male

DRUGS (1)
  1. RYBELSUS [Suspect]
     Active Substance: SEMAGLUTIDE
     Indication: Type 2 diabetes mellitus
     Dosage: 7 MG ONCE DAILY
     Route: 048
     Dates: start: 2021, end: 202401

REACTIONS (7)
  - Dysphagia [Not Recovered/Not Resolved]
  - Asthenia [Not Recovered/Not Resolved]
  - Muscle atrophy [Not Recovered/Not Resolved]
  - Drug intolerance [Unknown]
  - Eructation [Recovered/Resolved]
  - Gastrooesophageal reflux disease [Not Recovered/Not Resolved]
  - Condition aggravated [Recovered/Resolved]

NARRATIVE: CASE EVENT DATE: 20230601
